FAERS Safety Report 8974667 (Version 1)
Quarter: 2012Q4

REPORT INFORMATION
  Report Type: 
  Country: CH (occurrence: CH)
  Receive Date: 20121219
  Receipt Date: 20121219
  Transmission Date: 20130627
  Serious: Yes (Hospitalization)
  Sender: FDA-Public Use
  Company Number: CH-TEVA-376078ISR

PATIENT
  Age: 86 Year
  Sex: Male

DRUGS (7)
  1. GABAPENTIN [Suspect]
     Indication: PRODUCT USED FOR UNKNOWN INDICATION
     Dosage: 600 Milligram Daily;
     Route: 048
     Dates: start: 20121102, end: 20121109
  2. ASPIRIN CARDIO [Concomitant]
     Indication: PRODUCT USED FOR UNKNOWN INDICATION
     Dosage: 100 Milligram Daily;
     Route: 048
  3. AMLODIPIN [Concomitant]
     Indication: PRODUCT USED FOR UNKNOWN INDICATION
     Dosage: 20 Milligram Daily;
     Route: 048
  4. FINASTERIDE [Concomitant]
     Indication: PRODUCT USED FOR UNKNOWN INDICATION
     Dosage: 5 Milligram Daily;
     Route: 048
  5. PRAVALOTIN-MEPHA [Concomitant]
     Indication: PRODUCT USED FOR UNKNOWN INDICATION
     Dosage: 40 Milligram Daily;
     Route: 048
  6. SERTRALIN [Concomitant]
     Indication: PRODUCT USED FOR UNKNOWN INDICATION
     Dosage: 50 Milligram Daily;
     Route: 048
  7. VITAMIN A [Concomitant]
     Indication: PRODUCT USED FOR UNKNOWN INDICATION
     Dosage: 3 Dosage forms Daily;
     Route: 031

REACTIONS (3)
  - Hallucination, visual [Recovered/Resolved]
  - Balance disorder [Unknown]
  - Psychomotor skills impaired [Unknown]
